FAERS Safety Report 10689699 (Version 2)
Quarter: 2015Q1

REPORT INFORMATION
  Report Type: Spontaneous
  Country: US (occurrence: US)
  Receive Date: 20150105
  Receipt Date: 20150202
  Transmission Date: 20150720
  Serious: No
  Sender: FDA-Public Use
  Company Number: US-PFIZER INC-2014363487

PATIENT
  Age: 69 Year
  Sex: Male

DRUGS (4)
  1. ALLOPURINOL. [Concomitant]
     Active Substance: ALLOPURINOL
     Indication: GOUT
     Dosage: 100 MG, QD
     Dates: start: 201408
  2. INLYTA [Suspect]
     Active Substance: AXITINIB
     Indication: METASTATIC RENAL CELL CARCINOMA
     Dosage: 5 MG, BID
     Route: 048
     Dates: start: 20140919, end: 20141015
  3. AMLODIPINE [Concomitant]
     Active Substance: AMLODIPINE BESYLATE
     Indication: HYPERTENSION
     Dosage: 5 MG, QD
     Dates: start: 20141223
  4. GLIPIZIDE. [Concomitant]
     Active Substance: GLIPIZIDE
     Indication: DIABETES MELLITUS
     Dosage: 2.5 MG, QD

REACTIONS (3)
  - Stomatitis [Recovered/Resolved]
  - Fatigue [Recovered/Resolved]
  - Dysphonia [Recovered/Resolved]

NARRATIVE: CASE EVENT DATE: 2014
